FAERS Safety Report 6831014-X (Version None)
Quarter: 2010Q2

REPORT INFORMATION
  Report Type: 
  Country: None (occurrence: None)
  Receive Date: 20100520
  Receipt Date: 20090911
  Transmission Date: 20101027
  Serious: Yes (Disabling, Other)
  Sender: FDA-Public Use
  Company Number: 2009210758

PATIENT
  Age: 58 Year
  Sex: Female

DRUGS (8)
  1. PROVERA [Suspect]
     Indication: HORMONE REPLACEMENT THERAPY
     Dosage: 10 MG, ORAL
     Route: 048
     Dates: start: 19900301, end: 19970101
  2. PREMARIN [Suspect]
     Indication: HORMONE REPLACEMENT THERAPY
     Dosage: 1.25 MG
     Dates: start: 19900301, end: 19970101
  3. PREMPRO [Suspect]
     Indication: HORMONE REPLACEMENT THERAPY
     Dosage: 0.625 MG, 5 MG
     Dates: start: 19970101, end: 20030701
  4. VERAPAMIL [Concomitant]
  5. ALLOPURINOL [Concomitant]
  6. NEXIUM [Concomitant]
  7. KLOR-CON [Concomitant]
  8. DEMADEX [Concomitant]

REACTIONS (1)
  - BREAST CANCER [None]
